FAERS Safety Report 7558323-3 (Version None)
Quarter: 2011Q2

REPORT INFORMATION
  Report Type: 
  Country: None (occurrence: None)
  Receive Date: 20110620
  Receipt Date: 20110608
  Transmission Date: 20111010
  Serious: Yes (Hospitalization)
  Sender: FDA-Public Use
  Company Number: US-ELI_LILLY_AND_COMPANY-US201106003081

PATIENT
  Sex: Male

DRUGS (1)
  1. GEMZAR [Suspect]
     Dosage: UNK UNK, UNKNOWN
     Route: 042
     Dates: start: 20110211

REACTIONS (4)
  - NAUSEA [None]
  - VOMITING [None]
  - MENTAL STATUS CHANGES [None]
  - DEHYDRATION [None]
